FAERS Safety Report 11097062 (Version 3)
Quarter: 2015Q4

REPORT INFORMATION
  Report Type: Spontaneous
  Country: FR (occurrence: FR)
  Receive Date: 20150507
  Receipt Date: 20151019
  Transmission Date: 20160304
  Serious: Yes (Other)
  Sender: FDA-Public Use
  Company Number: FR-DSJP-DSE-2015-113653

PATIENT

DRUGS (3)
  1. CADENS [Suspect]
     Active Substance: CALCITONIN SALMON
     Indication: OSTEOARTHRITIS
     Dosage: 100 IU/1ML, QD
     Route: 030
     Dates: start: 20150219, end: 20150226
  2. OLMETEC 20 MG [Suspect]
     Active Substance: OLMESARTAN MEDOXOMIL
     Indication: HYPERTENSION
     Dosage: 20 MG, QD
     Route: 048
     Dates: start: 2012, end: 20150412
  3. ARTHRUM [Concomitant]
     Indication: OSTEOARTHRITIS

REACTIONS (4)
  - Vomiting [Recovered/Resolved]
  - Weight decreased [Recovered/Resolved]
  - Diarrhoea [Recovered/Resolved]
  - Hypokalaemia [Recovered/Resolved]

NARRATIVE: CASE EVENT DATE: 201502
